FAERS Safety Report 6403430-1 (Version None)
Quarter: 2009Q4

REPORT INFORMATION
  Report Type: 
  Country: None (occurrence: None)
  Receive Date: 20091015
  Receipt Date: 20091015
  Transmission Date: 20100525
  Serious: Yes (Disabling, Other)
  Sender: FDA-Public Use
  Company Number: None

PATIENT
  Sex: Male
  Weight: 61.2356 kg

DRUGS (1)
  1. AVELOX [Suspect]
     Indication: SINUSITIS
     Dosage: 400MG ONCE DAILY PO
     Route: 048
     Dates: start: 20090523, end: 20090530

REACTIONS (2)
  - RETINAL DETACHMENT [None]
  - VISUAL IMPAIRMENT [None]
